FAERS Safety Report 22331596 (Version 5)
Quarter: 2024Q1

REPORT INFORMATION
  Report Type: Spontaneous
  Country: NL (occurrence: NL)
  Receive Date: 20230517
  Receipt Date: 20240130
  Transmission Date: 20240410
  Serious: Yes (Hospitalization, Other)
  Sender: FDA-Public Use
  Company Number: NL-Accord-358027

PATIENT
  Age: 69 Year
  Sex: Male
  Weight: 79.2 kg

DRUGS (28)
  1. GEMCITABINE [Suspect]
     Active Substance: GEMCITABINE
     Indication: Diffuse large B-cell lymphoma stage IV
     Dosage: SINGLE (1Q2W),  C1D1-C1D15
     Route: 042
     Dates: start: 20230208, end: 20230222
  2. OXALIPLATIN [Suspect]
     Active Substance: OXALIPLATIN
     Indication: Diffuse large B-cell lymphoma stage IV
     Dosage: SINGLE (1Q2W), C1D1-C1D15
     Route: 042
     Dates: start: 20230208, end: 20230222
  3. EPCORITAMAB [Suspect]
     Active Substance: EPCORITAMAB
     Indication: Diffuse large B-cell lymphoma stage IV
     Dosage: PRIMING DOSE: 0.16 MG; SINGLE, C1D1
     Route: 058
     Dates: start: 20230208, end: 20230208
  4. CLEMASTINE [Concomitant]
     Active Substance: CLEMASTINE
     Indication: Premedication
     Dosage: 2 MG
     Route: 048
     Dates: start: 20230419, end: 20230419
  5. ACETAMINOPHEN [Concomitant]
     Active Substance: ACETAMINOPHEN
     Indication: Premedication
     Dosage: 1000 MG
     Route: 048
     Dates: start: 20230419, end: 20230419
  6. DEXAMETHASONE [Concomitant]
     Active Substance: DEXAMETHASONE
     Indication: Prophylaxis
     Dosage: 8 MG
     Route: 042
     Dates: start: 20230419, end: 20230419
  7. ASPIRIN [Concomitant]
     Active Substance: ASPIRIN
     Dates: start: 20230110
  8. AMITRIPTYLINE [Concomitant]
     Active Substance: AMITRIPTYLINE
     Dates: start: 20230301, end: 20230619
  9. SULFAMETHOXAZOLE\TRIMETHOPRIM [Concomitant]
     Active Substance: SULFAMETHOXAZOLE\TRIMETHOPRIM
     Dates: start: 20220502
  10. FOLIC ACID [Concomitant]
     Active Substance: FOLIC ACID
     Dates: start: 20220616
  11. GRANISETRON [Concomitant]
     Active Substance: GRANISETRON
     Dates: start: 20230419, end: 20230419
  12. POLYETHYLENE GLYCOLS [Concomitant]
     Active Substance: POLYETHYLENE GLYCOLS
     Dates: start: 20220131
  13. PANTOPRAZOLE SODIUM [Concomitant]
     Active Substance: PANTOPRAZOLE SODIUM
     Dates: start: 20220218
  14. ALBUTEROL [Concomitant]
     Active Substance: ALBUTEROL
     Dates: start: 20230308
  15. SIMVASTATIN [Concomitant]
     Active Substance: SIMVASTATIN
     Dates: start: 20211103
  16. VALACYCLOVIR HYDROCHLORIDE [Concomitant]
     Active Substance: VALACYCLOVIR HYDROCHLORIDE
     Dates: start: 20220530
  17. VALGANCICLOVIR [Concomitant]
     Active Substance: VALGANCICLOVIR
     Dates: start: 20230329, end: 20230415
  18. VORICONAZOLE [Concomitant]
     Active Substance: VORICONAZOLE
     Dates: start: 20230426, end: 20230426
  19. DOXYCYCLINE [Concomitant]
     Active Substance: DOXYCYCLINE
     Dates: start: 20230406, end: 20230419
  20. POTASSIUM CHLORIDE [Concomitant]
     Active Substance: POTASSIUM CHLORIDE
     Dates: start: 20230426, end: 20230505
  21. NADROPARIN [Concomitant]
     Active Substance: NADROPARIN
     Dates: start: 20230426, end: 20230510
  22. AUGMENTIN [Concomitant]
     Active Substance: AMOXICILLIN\CLAVULANATE POTASSIUM
     Dates: start: 20230510, end: 20230523
  23. EPCORITAMAB [Suspect]
     Active Substance: EPCORITAMAB
     Indication: Diffuse large B-cell lymphoma stage IV
     Dosage: INTERMEDIATE DOSE: 0.8 MG; SINGLE
     Route: 058
     Dates: start: 20230215, end: 20230215
  24. EPCORITAMAB [Suspect]
     Active Substance: EPCORITAMAB
     Indication: Diffuse large B-cell lymphoma stage IV
     Dosage: FULL DOSE: 48 MG; SINGLE, C1D15-C1D22
     Route: 058
     Dates: start: 20230222, end: 20230301
  25. EPCORITAMAB [Suspect]
     Active Substance: EPCORITAMAB
     Indication: Diffuse large B-cell lymphoma stage IV
     Dosage: RPD1: 0.16 MILLIGRAM, SINGLE, RPD1
     Route: 058
     Dates: start: 20230419, end: 20230419
  26. OXALIPLATIN [Suspect]
     Active Substance: OXALIPLATIN
     Indication: Diffuse large B-cell lymphoma stage IV
     Dosage: RPD1: 100 MILLIGRAM/SQ. METER (1Q2W);
     Route: 042
     Dates: start: 20230419, end: 20230419
  27. GEMCITABINE [Suspect]
     Active Substance: GEMCITABINE
     Indication: Diffuse large B-cell lymphoma stage IV
     Dosage: RPD1: 1000 MILLIGRAM/SQ METER, SINGLE
     Route: 042
     Dates: start: 20230419, end: 20230419
  28. CLEMASTINE [Concomitant]
     Active Substance: CLEMASTINE
     Dates: start: 20230508, end: 20230508

REACTIONS (2)
  - Diarrhoea [Unknown]
  - Pulmonary sepsis [Recovered/Resolved]

NARRATIVE: CASE EVENT DATE: 20230424
